FAERS Safety Report 17989498 (Version 2)
Quarter: 2020Q3

REPORT INFORMATION
  Report Type: Report from Study
  Country: FR (occurrence: FR)
  Receive Date: 20200707
  Receipt Date: 20200803
  Transmission Date: 20201103
  Serious: Yes (Hospitalization)
  Sender: FDA-Public Use
  Company Number: FR-US-PROVELL PHARMACEUTICALS LLC-9171983

PATIENT
  Age: 78 Year
  Sex: Female

DRUGS (3)
  1. ISOMERIDE [Concomitant]
     Active Substance: DEXFENFLURAMINE
     Indication: PRODUCT USED FOR UNKNOWN INDICATION
  2. MEDIATOR [Concomitant]
     Active Substance: BENFLUOREX
     Indication: PRODUCT USED FOR UNKNOWN INDICATION
  3. LEVOTHYROX [Suspect]
     Active Substance: LEVOTHYROXINE
     Indication: POST PROCEDURAL HYPOTHYROIDISM
     Dates: end: 2020

REACTIONS (11)
  - Pain in extremity [Unknown]
  - Palpitations [Recovered/Resolved]
  - Anxiety [Unknown]
  - Alopecia [Unknown]
  - Dizziness [Recovered/Resolved]
  - Hypertension [Recovered/Resolved]
  - Loss of consciousness [Recovered/Resolved]
  - Fatigue [Recovered/Resolved]
  - Insomnia [Recovered/Resolved]
  - Weight decreased [Recovered/Resolved]
  - Headache [Unknown]

NARRATIVE: CASE EVENT DATE: 2020
